FAERS Safety Report 7368926-7 (Version None)
Quarter: 2011Q1

REPORT INFORMATION
  Report Type: 
  Country: None (occurrence: None)
  Receive Date: 20110323
  Receipt Date: 20110316
  Transmission Date: 20110831
  Serious: Yes (Other)
  Sender: FDA-Public Use
  Company Number: US-ALEXION-A201000467

PATIENT
  Sex: Female
  Weight: 60.317 kg

DRUGS (12)
  1. PRENATAL VITAMINS                  /01549301/ [Concomitant]
     Dosage: UNK
     Route: 048
  2. ASCORBIC ACID [Concomitant]
  3. PREDNISONE [Concomitant]
     Indication: PAROXYSMAL NOCTURNAL HAEMOGLOBINURIA
     Dosage: 40 MG TAPER, 20 MG QD
     Route: 048
     Dates: start: 20100208, end: 20100610
  4. SOLIRIS [Suspect]
     Dosage: 900 MG, Q2W
     Route: 042
     Dates: start: 20091016
  5. LOVENOX [Concomitant]
     Indication: PREGNANCY
  6. SOLIRIS [Suspect]
     Indication: PAROXYSMAL NOCTURNAL HAEMOGLOBINURIA
     Dosage: 600 MG, QW
     Route: 042
     Dates: start: 20090101
  7. SOLIRIS [Suspect]
     Dosage: 900 MG, Q2W
     Route: 042
     Dates: start: 20110101
  8. PREDNISONE [Concomitant]
     Dosage: 20 MG, QD
     Route: 048
     Dates: start: 20100601, end: 20100915
  9. SOLIRIS [Suspect]
     Dosage: 1200 MG, Q2W
     Route: 042
     Dates: start: 20100906
  10. FOLIC ACID [Concomitant]
     Indication: PAROXYSMAL NOCTURNAL HAEMOGLOBINURIA
     Dosage: 1 MG, QD
     Route: 048
     Dates: start: 20090101
  11. LOVENOX [Concomitant]
     Indication: PAROXYSMAL NOCTURNAL HAEMOGLOBINURIA
     Dosage: 60 MG, BID
     Route: 058
     Dates: start: 20100101, end: 20101201
  12. IRON [Concomitant]
     Dosage: UNK
     Route: 048

REACTIONS (19)
  - GINGIVAL BLEEDING [None]
  - DRUG INEFFECTIVE [None]
  - ABDOMINAL PAIN [None]
  - HEADACHE [None]
  - PAIN IN EXTREMITY [None]
  - FATIGUE [None]
  - EPISTAXIS [None]
  - PALPITATIONS [None]
  - OESOPHAGEAL HAEMORRHAGE [None]
  - CHEST PAIN [None]
  - HAEMOGLOBIN DECREASED [None]
  - DRUG EXPOSURE DURING PREGNANCY [None]
  - BACK PAIN [None]
  - PARAESTHESIA [None]
  - HAEMATURIA [None]
  - HAEMOGLOBINURIA [None]
  - OROPHARYNGEAL PAIN [None]
  - HYPOAESTHESIA [None]
  - NERVOUSNESS [None]
